FAERS Safety Report 23662133 (Version 1)
Quarter: 2024Q1

REPORT INFORMATION
  Report Type: Spontaneous
  Country: US (occurrence: None)
  Receive Date: 20240321
  Receipt Date: 20240321
  Transmission Date: 20240410
  Serious: No
  Sender: FDA-Public Use
  Company Number: None

PATIENT
  Age: 29 Year
  Sex: Female

DRUGS (2)
  1. ADALIMUMAB [Suspect]
     Active Substance: ADALIMUMAB\ISOPROPYL ALCOHOL
     Indication: Cyclitis
     Dosage: 80MG SUBCUTANEOUSLY?INJECT 2 PENS UNDER THE SKIN ON DAY 1, THEN 1 PEN ON DAY 8, THEN 1 PEN EVERY 14
     Route: 058
     Dates: start: 202403
  2. CARITION [Concomitant]

REACTIONS (2)
  - Flushing [None]
  - Rash [None]

NARRATIVE: CASE EVENT DATE: 20240320
